FAERS Safety Report 4429223-2 (Version None)
Quarter: 2004Q3

REPORT INFORMATION
  Report Type: 
  Country: None (occurrence: None)
  Receive Date: 20040819
  Receipt Date: 20040819
  Transmission Date: 20050211
  Serious: Yes (Other)
  Sender: FDA-Public Use
  Company Number: None

PATIENT
  Age: 77 Year
  Sex: Female
  Weight: 82.1011 kg

DRUGS (7)
  1. CRESTOR [Suspect]
     Indication: HYPERLIPIDAEMIA
     Dosage: 20MG  DAILY  ORAL
     Route: 048
     Dates: start: 20031101, end: 20040701
  2. ATENOLOL [Concomitant]
  3. LISINOPRIL [Concomitant]
  4. ASPIRIN [Concomitant]
  5. FISH OIL [Concomitant]
  6. FLAX SEED OIL [Concomitant]
  7. GLUCOSAMINE [Concomitant]

REACTIONS (3)
  - DIZZINESS [None]
  - HEAD DISCOMFORT [None]
  - SOMNOLENCE [None]
